FAERS Safety Report 24605129 (Version 1)
Quarter: 2024Q4

REPORT INFORMATION
  Report Type: Spontaneous
  Country: US (occurrence: US)
  Receive Date: 20241111
  Receipt Date: 20241111
  Transmission Date: 20250114
  Serious: No
  Sender: PARATEK PHARMACEUTICALS
  Company Number: US-PARATEK PHARMACEUTICALS, INC.-2023PTK00556

PATIENT
  Age: 68 Year
  Sex: Female

DRUGS (3)
  1. NUZYRA [Suspect]
     Active Substance: OMADACYCLINE
     Indication: Abscess
     Dosage: UNK
     Route: 048
     Dates: start: 20231020, end: 202310
  2. KEYTRUDA [Concomitant]
     Active Substance: PEMBROLIZUMAB
  3. UNSPECIFIED TOPICALS [Concomitant]

REACTIONS (1)
  - Headache [Recovered/Resolved]

NARRATIVE: CASE EVENT DATE: 20231001
